FAERS Safety Report 7213648-6 (Version None)
Quarter: 2011Q1

REPORT INFORMATION
  Report Type: 
  Country: None (occurrence: None)
  Receive Date: 20110106
  Receipt Date: 20101217
  Transmission Date: 20110831
  Serious: No
  Sender: FDA-Public Use
  Company Number: US-B.I. PHARMACEUTICALS,INC./RIDGEFIELD-2010-BP-14909BP

PATIENT
  Sex: Female

DRUGS (8)
  1. PRADAXA [Suspect]
     Indication: ATRIAL FIBRILLATION
     Dosage: 300 MG
     Route: 048
  2. LOTENSIN [Concomitant]
     Dosage: 10 MG
  3. POTASSIUM [Concomitant]
     Dosage: 20 MEQ
  4. PRILOSEC [Concomitant]
     Dosage: 20 MG
  5. LASIX [Concomitant]
     Dosage: 40 MG
  6. FISH OIL [Concomitant]
     Dosage: 1200 MG
  7. CARDIZEM [Concomitant]
     Dosage: 240 MG
  8. CALCIUM WITH D [Concomitant]
     Dosage: 600 MG

REACTIONS (4)
  - ARTHRALGIA [None]
  - DIZZINESS [None]
  - JOINT STIFFNESS [None]
  - ABDOMINAL DISCOMFORT [None]
